FAERS Safety Report 19496459 (Version 3)
Quarter: 2022Q2

REPORT INFORMATION
  Report Type: Spontaneous
  Country: BR (occurrence: BR)
  Receive Date: 20210706
  Receipt Date: 20220628
  Transmission Date: 20220721
  Serious: Yes (Hospitalization, Other)
  Sender: FDA-Public Use
  Company Number: BR-GLAXOSMITHKLINE-BR2021AMR143219

PATIENT

DRUGS (1)
  1. BENLYSTA [Suspect]
     Active Substance: BELIMUMAB
     Indication: Systemic lupus erythematosus
     Dosage: UNK
     Dates: start: 20210614

REACTIONS (10)
  - Abdominal pain [Recovered/Resolved]
  - Gastrointestinal infection [Recovered/Resolved]
  - Abdominal distension [Recovering/Resolving]
  - Intra-abdominal fluid collection [Recovered/Resolved]
  - Systemic lupus erythematosus [Recovered/Resolved]
  - Nephritis [Recovered/Resolved]
  - Fluid retention [Recovered/Resolved]
  - Peritonitis [Recovered/Resolved]
  - Product availability issue [Unknown]
  - Product dose omission issue [Unknown]

NARRATIVE: CASE EVENT DATE: 20210627
